FAERS Safety Report 25636161 (Version 3)
Quarter: 2025Q3

REPORT INFORMATION
  Report Type: Spontaneous
  Country: US (occurrence: US)
  Receive Date: 20250803
  Receipt Date: 20250826
  Transmission Date: 20251020
  Serious: No
  Sender: SANOFI AVENTIS
  Company Number: US-SANOFI-02601557

PATIENT
  Age: 69 Year
  Sex: Female

DRUGS (1)
  1. INSULIN GLARGINE [Suspect]
     Active Substance: INSULIN GLARGINE
     Indication: Diabetes mellitus
     Dosage: 10 IU, QD

REACTIONS (6)
  - Hearing aid user [Unknown]
  - Injection site haemorrhage [Unknown]
  - Wrong technique in device usage process [Unknown]
  - Visual impairment [Unknown]
  - Product dispensing error [Unknown]
  - Device operational issue [Unknown]

NARRATIVE: CASE EVENT DATE: 20250701
